FAERS Safety Report 7077565-7 (Version None)
Quarter: 2010Q4

REPORT INFORMATION
  Report Type: 
  Country: None (occurrence: None)
  Receive Date: 20101101
  Receipt Date: 20101020
  Transmission Date: 20110411
  Serious: Yes (Other)
  Sender: FDA-Public Use
  Company Number: US-PFIZER INC-2010133615

PATIENT
  Sex: Female
  Weight: 50.794 kg

DRUGS (3)
  1. LYRICA [Suspect]
     Indication: FIBROMYALGIA
     Dosage: 75 MG, 2X/DAY
     Route: 048
     Dates: start: 20100101, end: 20101019
  2. NEURONTIN [Concomitant]
     Indication: FIBROMYALGIA
     Dosage: 800 MG, 4X/DAY
     Route: 048
  3. DICLOFENAC SODIUM [Concomitant]
     Indication: OSTEOPOROSIS
     Dosage: MONTHLY
     Route: 048

REACTIONS (2)
  - CHEST DISCOMFORT [None]
  - DYSPNOEA [None]
